FAERS Safety Report 17555915 (Version 1)
Quarter: 2020Q1

REPORT INFORMATION
  Report Type: Spontaneous
  Country: NL (occurrence: NL)
  Receive Date: 20200318
  Receipt Date: 20200318
  Transmission Date: 20200409
  Serious: Yes (Death)
  Sender: FDA-Public Use
  Company Number: NL-MYLANLABS-2020M1027261

PATIENT
  Age: 77 Year
  Sex: Male

DRUGS (5)
  1. METRONIDAZOLE. [Suspect]
     Active Substance: METRONIDAZOLE
     Indication: BRAIN ABSCESS
     Dosage: 500 MG, FREQ: 3 DAY; INTERVAL: 1
     Route: 042
  2. VANCOMYCIN [Suspect]
     Active Substance: VANCOMYCIN
     Indication: BRAIN ABSCESS
     Dosage: UNK
     Route: 041
  3. CEFTRIAXONE. [Suspect]
     Active Substance: CEFTRIAXONE
     Indication: BRAIN ABSCESS
     Dosage: 2 G, FREQ: 2 DAY; INTERVAL: 1
     Route: 042
  4. CLARITHROMYCIN. [Suspect]
     Active Substance: CLARITHROMYCIN
     Indication: BRAIN ABSCESS
     Dosage: 250 MG, FREQ: 2 DAY; INTERVAL: 1
     Route: 048
  5. AMOXICILLIN. [Suspect]
     Active Substance: AMOXICILLIN
     Indication: BRAIN ABSCESS
     Dosage: 2 G, FREQ: 6 DAY; INTERVAL: 1
     Route: 042

REACTIONS (5)
  - Haemodynamic instability [Fatal]
  - Acute hepatic failure [Fatal]
  - Drug reaction with eosinophilia and systemic symptoms [Fatal]
  - Respiratory failure [Fatal]
  - Renal failure [Fatal]
